FAERS Safety Report 12779863 (Version 1)
Quarter: 2016Q3

REPORT INFORMATION
  Report Type: Spontaneous
  Country: RO (occurrence: RO)
  Receive Date: 20160926
  Receipt Date: 20160926
  Transmission Date: 20161109
  Serious: Yes (Life-Threatening, Hospitalization, Other)
  Sender: FDA-Public Use
  Company Number: RO-ASTELLAS-2016US037142

PATIENT
  Sex: Female

DRUGS (4)
  1. BETMIGA [Suspect]
     Active Substance: MIRABEGRON
     Indication: URINARY INCONTINENCE
     Route: 048
     Dates: start: 20160827, end: 20160915
  2. TRITACE [Concomitant]
     Active Substance: RAMIPRIL
     Indication: HYPERTENSION
     Dosage: 1 TABLET, ONCE DAILY
     Route: 048
     Dates: start: 2013
  3. ASPENTER [Concomitant]
     Active Substance: ASPIRIN
     Indication: PERIPHERAL VASCULAR DISORDER
     Dosage: 1 TABLET, ONCE DAILY
     Route: 048
     Dates: start: 2013
  4. EUTHYROX [Concomitant]
     Active Substance: LEVOTHYROXINE SODIUM
     Indication: POST PROCEDURAL HYPOTHYROIDISM
     Route: 048

REACTIONS (17)
  - Eye swelling [Recovered/Resolved]
  - Lip swelling [Recovered/Resolved]
  - Eye swelling [Recovered/Resolved]
  - Pruritus [Recovered/Resolved]
  - Skin discolouration [Unknown]
  - Pain [Unknown]
  - Pruritus [Recovered/Resolved]
  - Poisoning [Unknown]
  - Hypertension [Recovered/Resolved]
  - Joint swelling [Recovered/Resolved]
  - Stomatitis [Unknown]
  - Skin discolouration [Unknown]
  - Lip swelling [Recovered/Resolved]
  - Joint swelling [Recovered/Resolved]
  - Suffocation feeling [Recovered/Resolved]
  - Suffocation feeling [Recovered/Resolved]
  - Apparent death [Unknown]

NARRATIVE: CASE EVENT DATE: 20160831
